FAERS Safety Report 22200798 (Version 1)
Quarter: 2023Q2

REPORT INFORMATION
  Report Type: Spontaneous
  Country: US (occurrence: US)
  Receive Date: 20230412
  Receipt Date: 20230412
  Transmission Date: 20230721
  Serious: No
  Sender: FDA-Public Use
  Company Number: US-GSK-US2023AMR049530

PATIENT
  Sex: Female
  Weight: 83.9 kg

DRUGS (1)
  1. ZEJULA [Suspect]
     Active Substance: NIRAPARIB
     Indication: Ovarian cancer
     Dosage: 200 MG, QD
     Route: 048
     Dates: start: 20230202

REACTIONS (6)
  - Infection [Unknown]
  - Cough [Unknown]
  - Abdominal discomfort [Unknown]
  - Tumour marker increased [Unknown]
  - Fatigue [Unknown]
  - Nausea [Unknown]
